FAERS Safety Report 10914196 (Version 1)
Quarter: 2015Q1

REPORT INFORMATION
  Report Type: Spontaneous
  Country: FR (occurrence: FR)
  Receive Date: 20150313
  Receipt Date: 20150313
  Transmission Date: 20150721
  Serious: Yes (Hospitalization)
  Sender: FDA-Public Use
  Company Number: FR-JNJFOC-20150307886

PATIENT
  Age: 51 Year
  Sex: Male

DRUGS (9)
  1. REMICADE [Suspect]
     Active Substance: INFLIXIMAB
     Indication: ANKYLOSING SPONDYLITIS
     Dosage: 0.0119 DOSAGE FORM
     Route: 042
     Dates: start: 2003
  2. RIFAMPICIN [Suspect]
     Active Substance: RIFAMPIN
     Indication: PRODUCT USED FOR UNKNOWN INDICATION
     Route: 065
     Dates: end: 20150120
  3. JANUVIA [Concomitant]
     Active Substance: SITAGLIPTIN PHOSPHATE
     Route: 048
  4. DIAMICRON [Concomitant]
     Active Substance: GLICLAZIDE
     Route: 048
  5. BIPRETERAX [Concomitant]
     Active Substance: INDAPAMIDE\PERINDOPRIL
     Route: 048
  6. ROCEPHIN [Suspect]
     Active Substance: CEFTRIAXONE SODIUM
     Indication: PRODUCT USED FOR UNKNOWN INDICATION
     Route: 065
  7. REMICADE [Suspect]
     Active Substance: INFLIXIMAB
     Indication: ANKYLOSING SPONDYLITIS
     Route: 042
     Dates: start: 20150107
  8. TAHOR [Concomitant]
     Active Substance: ATORVASTATIN CALCIUM
     Route: 048
  9. TANVIC [Suspect]
     Active Substance: LEVOFLOXACIN
     Indication: PRODUCT USED FOR UNKNOWN INDICATION
     Route: 065
     Dates: end: 20150120

REACTIONS (12)
  - Confusional state [None]
  - Lung disorder [Unknown]
  - Vomiting [None]
  - Incorrect dose administered [Unknown]
  - Influenza [None]
  - Hyperthermia [None]
  - Hypotension [None]
  - Gamma-glutamyltransferase increased [None]
  - Nausea [None]
  - Liver function test abnormal [Recovering/Resolving]
  - Legionella test [Unknown]
  - Blood alkaline phosphatase increased [None]

NARRATIVE: CASE EVENT DATE: 20150109
